FAERS Safety Report 13528314 (Version 1)
Quarter: 2017Q2

REPORT INFORMATION
  Report Type: Spontaneous
  Country: US (occurrence: US)
  Receive Date: 20170509
  Receipt Date: 20170509
  Transmission Date: 20170830
  Serious: No
  Sender: FDA-Public Use
  Company Number: US-BAYER-2017-087425

PATIENT
  Age: 27 Year
  Sex: Female

DRUGS (2)
  1. MIDOL EXTENDED RELIEF [Suspect]
     Active Substance: NAPROXEN SODIUM
     Indication: PAIN
     Route: 048
  2. MIDOL EXTENDED RELIEF [Suspect]
     Active Substance: NAPROXEN SODIUM
     Indication: DYSMENORRHOEA

REACTIONS (5)
  - Fatigue [None]
  - Nervousness [Unknown]
  - Asthenia [Unknown]
  - Abdominal discomfort [None]
  - Product use issue [Unknown]

NARRATIVE: CASE EVENT DATE: 20170507
